FAERS Safety Report 7526803-2 (Version None)
Quarter: 2011Q2

REPORT INFORMATION
  Report Type: 
  Country: None (occurrence: None)
  Receive Date: 20110606
  Receipt Date: 20110523
  Transmission Date: 20111010
  Serious: No
  Sender: FDA-Public Use
  Company Number: US-B.I. PHARMACEUTICALS,INC./RIDGEFIELD-2011-BP-11427BP

PATIENT
  Age: 68 Year
  Sex: Male
  Weight: 95 kg

DRUGS (9)
  1. AGGRENOX [Suspect]
     Indication: CEREBROVASCULAR ACCIDENT PROPHYLAXIS
     Route: 048
     Dates: start: 20110415, end: 20110416
  2. METOPROLOL TARTRATE [Concomitant]
     Indication: HYPERTENSION
     Dosage: 50 MG
  3. TRAZODONE HCL [Concomitant]
     Indication: DEPRESSION
     Dosage: 50 MG
  4. CLONAZEPAM [Concomitant]
     Indication: DEPRESSION
     Dosage: 0.5 MG
  5. METFORMIN HCL [Concomitant]
     Indication: DIABETES MELLITUS
     Dosage: 1000 MG
  6. PAXIL [Concomitant]
     Indication: DEPRESSION
     Dosage: 20 MG
  7. LIPITOR [Concomitant]
     Indication: BLOOD CHOLESTEROL INCREASED
     Dosage: 20 MG
  8. AGGRENOX [Suspect]
     Indication: TRANSIENT ISCHAEMIC ATTACK
  9. VALTREX [Concomitant]
     Dosage: 1 G

REACTIONS (4)
  - DIARRHOEA [None]
  - VOMITING [None]
  - HEADACHE [None]
  - GASTROINTESTINAL DISORDER [None]
